FAERS Safety Report 15370528 (Version 2)
Quarter: 2018Q4

REPORT INFORMATION
  Report Type: Spontaneous
  Country: US (occurrence: US)
  Receive Date: 20180911
  Receipt Date: 20181008
  Transmission Date: 20190204
  Serious: Yes (Other)
  Sender: FDA-Public Use
  Company Number: US-SAKK-2018SA248806AA

PATIENT
  Age: 82 Year
  Sex: Male

DRUGS (2)
  1. ALIROCUMAB PREFILLED PEN [Suspect]
     Active Substance: ALIROCUMAB
     Indication: PRODUCT USED FOR UNKNOWN INDICATION
     Dosage: 75 MG, QOW
     Route: 058
     Dates: start: 20180412
  2. PRALUENT [Suspect]
     Active Substance: ALIROCUMAB
     Indication: PRODUCT USED FOR UNKNOWN INDICATION
     Dosage: 75 MG, QOW
     Route: 058
     Dates: start: 20180412

REACTIONS (1)
  - Coronary artery occlusion [Unknown]

NARRATIVE: CASE EVENT DATE: 20180829
